FAERS Safety Report 7135362-8 (Version None)
Quarter: 2010Q4

REPORT INFORMATION
  Report Type: 
  Country: None (occurrence: None)
  Receive Date: 20101203
  Receipt Date: 20101201
  Transmission Date: 20110411
  Serious: Yes (Hospitalization)
  Sender: FDA-Public Use
  Company Number: AU-PFIZER INC-2010029869

PATIENT
  Age: 75 Year
  Sex: Male

DRUGS (1)
  1. SUNITINIB MALATE [Suspect]
     Indication: METASTATIC RENAL CELL CARCINOMA
     Dosage: 50 MG, UNK
     Route: 048
     Dates: start: 20090901

REACTIONS (5)
  - DISEASE PROGRESSION [None]
  - FATIGUE [None]
  - METASTATIC RENAL CELL CARCINOMA [None]
  - SYNCOPE [None]
  - THROMBOCYTOPENIA [None]
